FAERS Safety Report 13711770 (Version 1)
Quarter: 2017Q3

REPORT INFORMATION
  Report Type: Spontaneous
  Country: GB (occurrence: GB)
  Receive Date: 20170703
  Receipt Date: 20170703
  Transmission Date: 20171127
  Serious: Yes (Hospitalization)
  Sender: FDA-Public Use
  Company Number: GB-VERTEX PHARMACEUTICALS-2017-003116

PATIENT
  Age: 24 Year
  Sex: Male

DRUGS (16)
  1. AZITHROMYCIN ANHYDROUS. [Concomitant]
     Active Substance: AZITHROMYCIN ANHYDROUS
     Dosage: 250 MG, BID
  2. IBUPROFEN. [Concomitant]
     Active Substance: IBUPROFEN
     Dosage: UNK, PRN
  3. CARBOCYSTEINE [Concomitant]
     Active Substance: CARBOCYSTEINE
     Dosage: 700 MG, BID
  4. ORKAMBI [Suspect]
     Active Substance: IVACAFTOR\LUMACAFTOR
     Indication: CYSTIC FIBROSIS
     Dosage: 400/ 250 MG, QD
     Route: 048
     Dates: start: 20170320, end: 20170322
  5. AVAMYS [Concomitant]
     Active Substance: FLUTICASONE FUROATE
  6. ORKAMBI [Suspect]
     Active Substance: IVACAFTOR\LUMACAFTOR
     Dosage: 400/ 250 MG, BID
     Route: 048
     Dates: start: 20170323, end: 201704
  7. 7% HYPERTONIC SALINE SOLUTION [Concomitant]
  8. AZLI [Concomitant]
     Dosage: ALTERNATE MONTHS WITH TOBRAMYCIN
  9. CREON [Concomitant]
     Active Substance: PANCRELIPASE AMYLASE\PANCRELIPASE LIPASE\PANCRELIPASE PROTEASE
  10. SALBUTAMOL [Concomitant]
     Active Substance: ALBUTEROL
     Dosage: UNK, PRN
     Route: 055
  11. DNASE [Concomitant]
     Active Substance: DEOXYRIBONUCLIEC ACID
     Dosage: 2.5 MG, BID
     Route: 055
  12. TRANEXAMIC ACID. [Concomitant]
     Active Substance: TRANEXAMIC ACID
  13. TOBRAMYCIN. [Concomitant]
     Active Substance: TOBRAMYCIN
     Dosage: ALTERNATE MONTHS WITH AZLI
     Route: 055
  14. UNIPHYLLINE [Concomitant]
     Dosage: 200 MG, BID
  15. VIT A+D [Concomitant]
     Dosage: UNK, QD
  16. SUMATRIPTAN. [Concomitant]
     Active Substance: SUMATRIPTAN
     Dosage: 50 MG, PRN

REACTIONS (1)
  - Urticaria [Recovered/Resolved]

NARRATIVE: CASE EVENT DATE: 20170328
